FAERS Safety Report 5636937-5 (Version None)
Quarter: 2008Q1

REPORT INFORMATION
  Report Type: 
  Country: None (occurrence: None)
  Receive Date: 20080225
  Receipt Date: 20070110
  Transmission Date: 20080703
  Serious: No
  Sender: FDA-Public Use
  Company Number: US-BRISTOL-MYERS SQUIBB COMPANY-13637830

PATIENT
  Age: 59 Year
  Sex: Male
  Weight: 111 kg

DRUGS (4)
  1. GLUCOPHAGE [Suspect]
     Indication: BLOOD GLUCOSE INCREASED
     Route: 048
     Dates: start: 20061201, end: 20070104
  2. ACIPHEX [Concomitant]
  3. SYNTHROID [Concomitant]
  4. CLARINEX [Concomitant]

REACTIONS (1)
  - ABDOMINAL PAIN [None]
